FAERS Safety Report 12228008 (Version 1)
Quarter: 2016Q2

REPORT INFORMATION
  Report Type: Spontaneous
  Country: US (occurrence: US)
  Receive Date: 20160401
  Receipt Date: 20160401
  Transmission Date: 20160815
  Serious: Yes (Other)
  Sender: FDA-Public Use
  Company Number: US-GLENMARK PHARMACEUTICALS INC, USA.-2016GMK022432

PATIENT
  Age: 91 Year
  Sex: Female

DRUGS (1)
  1. IMIQUIMOD. [Suspect]
     Active Substance: IMIQUIMOD
     Indication: MALIGNANT MELANOMA
     Dosage: UNK

REACTIONS (4)
  - Off label use [Unknown]
  - Metastatic malignant melanoma [Recovered/Resolved]
  - No therapeutic response [Unknown]
  - Disease progression [Recovered/Resolved]
